FAERS Safety Report 19497776 (Version 1)
Quarter: 2021Q3

REPORT INFORMATION
  Report Type: Spontaneous
  Country: JP (occurrence: JP)
  Receive Date: 20210706
  Receipt Date: 20210706
  Transmission Date: 20211014
  Serious: Yes (Hospitalization)
  Sender: FDA-Public Use
  Company Number: JP-PERRIGO-21JP008457

PATIENT
  Age: 67 Year
  Sex: Female

DRUGS (1)
  1. IBUPROFEN. [Suspect]
     Active Substance: IBUPROFEN
     Indication: DENTAL CARIES
     Dosage: UNK
     Route: 048

REACTIONS (3)
  - Anaemia [Recovering/Resolving]
  - Ileal stenosis [Recovered/Resolved]
  - Small intestine ulcer [Unknown]
